FAERS Safety Report 7453982-8 (Version None)
Quarter: 2011Q2

REPORT INFORMATION
  Report Type: 
  Country: None (occurrence: None)
  Receive Date: 20110502
  Receipt Date: 20110426
  Transmission Date: 20111010
  Serious: Yes (Hospitalization, Other)
  Sender: FDA-Public Use
  Company Number: US-ROCHE-743232

PATIENT
  Sex: Female
  Weight: 163.3 kg

DRUGS (2)
  1. ACCUTANE [Suspect]
     Route: 065
     Dates: start: 19980101, end: 19981201
  2. ACCUTANE [Suspect]
     Indication: ACNE
     Route: 065
     Dates: start: 19940601, end: 19940901

REACTIONS (6)
  - INFLAMMATORY BOWEL DISEASE [None]
  - GASTROINTESTINAL INJURY [None]
  - SCHIZOPHRENIA [None]
  - COLONIC POLYP [None]
  - COLITIS ULCERATIVE [None]
  - DEPRESSION [None]
